FAERS Safety Report 24691138 (Version 1)
Quarter: 2024Q4

REPORT INFORMATION
  Report Type: Spontaneous
  Country: GB (occurrence: GB)
  Receive Date: 20241203
  Receipt Date: 20241203
  Transmission Date: 20250115
  Serious: Yes (Other)
  Sender: MYLAN
  Company Number: None

PATIENT
  Age: 92 Year
  Sex: Male
  Weight: 57 kg

DRUGS (20)
  1. GABAPENTIN [Suspect]
     Active Substance: GABAPENTIN
     Indication: Product used for unknown indication
     Dosage: 300 MILLIGRAM, QD (TAKE ONE CAPSULE ONCE DAILY ON DAY 1, THEN ONE CAPSULE TWICE DAILY ON DAY 2, THEN
     Route: 048
     Dates: start: 20241022, end: 20241114
  2. COAL TAR\COCONUT OIL\SALICYLIC ACID [Concomitant]
     Active Substance: COAL TAR\COCONUT OIL\SALICYLIC ACID
     Indication: Ill-defined disorder
     Dosage: UNK
     Route: 065
     Dates: start: 20240828, end: 20240911
  3. CLOBETASONE BUTYRATE [Concomitant]
     Active Substance: CLOBETASONE BUTYRATE
     Indication: Ill-defined disorder
     Dosage: QD (APPLY ONCE DAILY TO RASH ON NECK)
     Route: 065
     Dates: start: 20240927, end: 20241011
  4. CLOBETASONE BUTYRATE [Concomitant]
     Active Substance: CLOBETASONE BUTYRATE
     Indication: Rash
  5. MINERAL OIL\PARAFFIN [Concomitant]
     Active Substance: MINERAL OIL\PARAFFIN
     Indication: Ill-defined disorder
     Dosage: QD (USE TO MOISTURISE WITH DAILY)
     Route: 065
     Dates: start: 20240828
  6. Eyeaze [Concomitant]
     Indication: Ill-defined disorder
     Dosage: 1 DOSAGE FORM (ONE DROP IN TO THE AFFECTED EYES, TWO TO FOUR )
     Route: 047
     Dates: start: 20240828
  7. MENTHOL [Concomitant]
     Active Substance: MENTHOL
     Indication: Ill-defined disorder
     Dosage: UNK UNK, PRN
     Route: 065
     Dates: start: 20240828, end: 20240925
  8. FEXOFENADINE [Concomitant]
     Active Substance: FEXOFENADINE HYDROCHLORIDE
     Indication: Ill-defined disorder
     Dosage: 1 DOSAGE FORM, QD (TAKE ONE DAILY)
     Route: 065
     Dates: start: 20240918, end: 20241018
  9. KETOCONAZOLE [Concomitant]
     Active Substance: KETOCONAZOLE
     Indication: Ill-defined disorder
     Dosage: BIWEEKLY (USE TWICE WEEKLY WHEN WASHING HAIR)
     Route: 065
     Dates: start: 20240927, end: 20241025
  10. Betacap [Concomitant]
     Indication: Ill-defined disorder
     Dosage: 1 DOSAGE FORM, QD (APPLY ONCE DAILY)
     Route: 065
     Dates: start: 20241014, end: 20241021
  11. ACYCLOVIR [Concomitant]
     Active Substance: ACYCLOVIR
     Indication: Ill-defined disorder
     Dosage: 1 DOSAGE FORM, 5X (TAKE ONE 5 TIMES A DAY  )
     Route: 065
     Dates: start: 20241029, end: 20241105
  12. CETIRIZINE [Concomitant]
     Active Substance: CETIRIZINE HYDROCHLORIDE
     Indication: Ill-defined disorder
     Dosage: 1 DOSAGE FORM, QD (TAKE ONE DAILY)
     Route: 065
     Dates: start: 20241115
  13. PREDNISOLONE [Concomitant]
     Active Substance: PREDNISOLONE
     Indication: Ill-defined disorder
     Dosage: 6 DOSAGE FORM, QD (TAKE SIX TABLETS AS A SINGLE DOSE ONCE DAILY)
     Route: 065
     Dates: start: 20241115
  14. PREGABALIN [Concomitant]
     Active Substance: PREGABALIN
     Indication: Ill-defined disorder
     Dosage: 1 DOSAGE FORM, BID (TAKE ONE CAPSULE TWICE A DAY)
     Route: 065
     Dates: start: 20241115
  15. APIXABAN [Concomitant]
     Active Substance: APIXABAN
     Indication: Ill-defined disorder
     Dosage: 1 DOSAGE FORM, BID (ONE TO BE TAKEN TWICE DAILY TO THIN BLOOD)
     Route: 065
     Dates: start: 20240710
  16. APIXABAN [Concomitant]
     Active Substance: APIXABAN
     Indication: Anticoagulant therapy
  17. BISOPROLOL [Concomitant]
     Active Substance: BISOPROLOL
     Indication: Ill-defined disorder
     Dosage: 1 DOSAGE FORM, QD
     Route: 065
     Dates: start: 20240710
  18. BIMATOPROST\TIMOLOL [Concomitant]
     Active Substance: BIMATOPROST\TIMOLOL
     Indication: Ill-defined disorder
     Dosage: 1 DOSAGE FORM, QD (ONE DROP ONCE DAILY TO BOTH EYES)
     Route: 047
     Dates: start: 20240710
  19. LOSARTAN [Concomitant]
     Active Substance: LOSARTAN
     Indication: Ill-defined disorder
     Dosage: 1 DOSAGE FORM, QD (TAKE ONE DAILY)
     Route: 065
     Dates: start: 20240710
  20. SIMVASTATIN [Concomitant]
     Active Substance: SIMVASTATIN
     Indication: Ill-defined disorder
     Dosage: 1 DOSAGE FORM, PM (TAKE ONE AT NIGHT INSTEAD OF ATORVASTATIN)
     Route: 065
     Dates: start: 20240710

REACTIONS (1)
  - Dermatitis allergic [Recovering/Resolving]

NARRATIVE: CASE EVENT DATE: 20241104
